FAERS Safety Report 6983888-X (Version None)
Quarter: 2010Q3

REPORT INFORMATION
  Report Type: 
  Country: None (occurrence: None)
  Receive Date: 20100914
  Receipt Date: 20090323
  Transmission Date: 20110219
  Serious: No
  Sender: FDA-Public Use
  Company Number: US-WYE-H08702009

PATIENT
  Age: 62 Year
  Sex: Male
  Weight: 82.63 kg

DRUGS (4)
  1. ADVIL LIQUI-GELS [Suspect]
     Indication: ANALGESIC THERAPY
     Route: 048
     Dates: start: 20090301
  2. METFORMIN HCL [Concomitant]
  3. ADVIL PM [Concomitant]
  4. GLYBURIDE [Concomitant]

REACTIONS (1)
  - GASTROOESOPHAGEAL REFLUX DISEASE [None]
